FAERS Safety Report 10109002 (Version 1)
Quarter: 2014Q2

REPORT INFORMATION
  Report Type: Spontaneous
  Country: US (occurrence: US)
  Receive Date: 20140425
  Receipt Date: 20140425
  Transmission Date: 20141212
  Serious: Yes (Death)
  Sender: FDA-Public Use
  Company Number: US-TEVA-477544USA

PATIENT
  Age: 75 Year
  Sex: Male

DRUGS (1)
  1. VORICONAZOLE [Suspect]
     Indication: SCEDOSPORIUM INFECTION
     Route: 065

REACTIONS (1)
  - Squamous cell carcinoma of skin [Fatal]
